FAERS Safety Report 5537504-4 (Version None)
Quarter: 2007Q4

REPORT INFORMATION
  Report Type: 
  Country: None (occurrence: None)
  Receive Date: 20071207
  Receipt Date: 20071129
  Transmission Date: 20080405
  Serious: Yes (Death, Hospitalization, Other)
  Sender: FDA-Public Use
  Company Number: US-ELI_LILLY_AND_COMPANY-US200707007143

PATIENT
  Age: 60 Year
  Sex: Female

DRUGS (24)
  1. BYETTA [Suspect]
     Indication: TYPE 2 DIABETES MELLITUS
     Dosage: 10 UG, 2/D
     Route: 058
     Dates: start: 20060501, end: 20070809
  2. APIDRA [Concomitant]
     Indication: DIABETES MELLITUS
     Dosage: 38 U, EACH MORNING
  3. APIDRA [Concomitant]
     Dosage: 36 U, OTHER
  4. APIDRA [Concomitant]
     Dosage: 38 U, OTHER
  5. APIDRA [Concomitant]
     Dosage: UNK, AS NEEDED
  6. APIDRA [Concomitant]
     Dosage: 40 U, EACH EVENING
  7. LANTUS [Concomitant]
     Dosage: 75 U, OTHER
  8. LEXAPRO [Concomitant]
     Dosage: 10 MG, DAILY (1/D)
  9. LASIX [Concomitant]
     Dosage: 80 MG, 2/D
  10. QUINAPRIL HCL [Concomitant]
     Dosage: 20 MG, 2/D
  11. CHROMAGEN [Concomitant]
     Dosage: 120 U, DAILY (1/D)
  12. GABAPENTIN [Concomitant]
     Dosage: 600 MG, 3/D
  13. PROBENECID [Concomitant]
     Dosage: 1000 MG, 2/D
  14. LEVOXYL [Concomitant]
     Dosage: 88 UG, DAILY (1/D)
  15. PROCRIT [Concomitant]
     Dosage: 40000 ML, WEEKLY (1/W)
  16. FOLIC ACID [Concomitant]
     Dosage: 1 MG, DAILY (1/D)
  17. ALDACTONE [Concomitant]
     Dosage: 12.5 MG, DAILY (1/D)
  18. COREG [Concomitant]
     Dosage: 6.25 MG, 2/D
  19. ALLOPURINOL [Concomitant]
     Dosage: 100 MG, DAILY (1/D)
  20. ZOCOR [Concomitant]
     Dosage: 10 MG, DAILY (1/D)
  21. BACTRIM [Concomitant]
     Dosage: 400 MG, DAILY (1/D)
  22. COMPAZINE [Concomitant]
     Indication: NAUSEA
     Dosage: 5 MG, AS NEEDED
  23. XANAX [Concomitant]
     Indication: ANXIETY
     Dosage: 0.5 MG, AS NEEDED
  24. SKELAXIN [Concomitant]
     Indication: PAIN
     Dosage: 800 MG, AS NEEDED

REACTIONS (6)
  - ANAEMIA [None]
  - DEEP VEIN THROMBOSIS [None]
  - GASTRIC ULCER HAEMORRHAGE [None]
  - HOSPITALISATION [None]
  - KNEE OPERATION [None]
  - RESPIRATORY FAILURE [None]
